FAERS Safety Report 9095831 (Version 3)
Quarter: 2013Q2

REPORT INFORMATION
  Report Type: Report from Study
  Country: US (occurrence: US)
  Receive Date: 20130220
  Receipt Date: 20130409
  Transmission Date: 20140414
  Serious: Yes (Hospitalization, Other)
  Sender: FDA-Public Use
  Company Number: US-ACTELION-A-US2013-79494

PATIENT
  Age: 88 Year
  Sex: Female

DRUGS (3)
  1. TRACLEER [Suspect]
     Indication: PULMONARY ARTERIAL HYPERTENSION
     Dosage: UNK
     Route: 048
  2. VENTAVIS [Suspect]
     Indication: PULMONARY ARTERIAL HYPERTENSION
     Dosage: UNK
     Route: 055
  3. ADCIRCA [Concomitant]

REACTIONS (16)
  - Gastrointestinal haemorrhage [Unknown]
  - Atrioventricular block complete [Recovering/Resolving]
  - Packed red blood cell transfusion [Recovering/Resolving]
  - Diverticulum [Unknown]
  - Dehydration [Unknown]
  - Endoscopy small intestine [Unknown]
  - Arrhythmia [Unknown]
  - Atrial flutter [Unknown]
  - Haemoglobin decreased [Recovering/Resolving]
  - Renal failure acute [Unknown]
  - Orthostatic hypotension [Unknown]
  - Weight decreased [Unknown]
  - Malaise [Unknown]
  - Dizziness [Unknown]
  - Presyncope [Unknown]
  - Blood iron abnormal [Unknown]
